FAERS Safety Report 9783172 (Version 1)
Quarter: 2013Q4

REPORT INFORMATION
  Report Type: Spontaneous
  Country: US (occurrence: None)
  Receive Date: 20131223
  Receipt Date: 20131223
  Transmission Date: 20140711
  Serious: Yes (Other)
  Sender: FDA-Public Use
  Company Number: EUS-2012-00014

PATIENT
  Age: 10 Year
  Sex: Male

DRUGS (5)
  1. ERWINASE [Suspect]
     Indication: ACUTE LYMPHOCYTIC LEUKAEMIA
     Dosage: (29250 IU, ON 06, 08, 11 AND 13 JUL
     Route: 030
     Dates: start: 20110706, end: 20110713
  2. ADVAIR (FLUTICASONE PROPIONATE) [Concomitant]
  3. XOPENEX (LEVOSALBUTAMOL) [Concomitant]
  4. NASONEX (MOMETASONE FUROATE) [Concomitant]
  5. FAMOTIDINE [Concomitant]

REACTIONS (1)
  - Hypersensitivity [None]
